FAERS Safety Report 5611005-7 (Version None)
Quarter: 2008Q1

REPORT INFORMATION
  Report Type: 
  Country: None (occurrence: None)
  Receive Date: 20080201
  Receipt Date: 20080128
  Transmission Date: 20080703
  Serious: Yes (Hospitalization, Other)
  Sender: FDA-Public Use
  Company Number: B0478878A

PATIENT
  Age: 57 Year
  Sex: Male
  Weight: 86 kg

DRUGS (5)
  1. AVANDAMET [Suspect]
     Dosage: 1TAB TWICE PER DAY
     Route: 048
     Dates: start: 20060324, end: 20060827
  2. ALDACTONE [Concomitant]
     Dosage: 75MG PER DAY
     Route: 048
  3. LASILIX [Concomitant]
     Dosage: 20MG PER DAY
     Route: 048
  4. LOPRIL [Concomitant]
     Dosage: 25MG TWICE PER DAY
     Route: 048
  5. BISOPROLOL FUMARATE [Concomitant]
     Dosage: 3.75MG PER DAY
     Route: 048

REACTIONS (5)
  - ACUTE PULMONARY OEDEMA [None]
  - CARDIAC FAILURE [None]
  - DYSPNOEA [None]
  - HEART TRANSPLANT [None]
  - LEFT VENTRICULAR DYSFUNCTION [None]
